FAERS Safety Report 9628264 (Version 4)
Quarter: 2013Q4

REPORT INFORMATION
  Report Type: Spontaneous
  Country: US (occurrence: US)
  Receive Date: 20131017
  Receipt Date: 20131231
  Transmission Date: 20140711
  Serious: No
  Sender: FDA-Public Use
  Company Number: US-009507513-1310USA002069

PATIENT
  Sex: Male

DRUGS (4)
  1. PEGINTRON [Suspect]
     Indication: HEPATITIS C
     Dosage: .4 ML, QW
     Route: 058
     Dates: start: 20130929
  2. REBETOL [Suspect]
     Indication: HEPATITIS C
     Dosage: UNK, BID; 600/400 MG
     Route: 048
     Dates: start: 20130929
  3. CYCLOBENZAPRINE HYDROCHLORIDE [Concomitant]
     Dosage: 1 DF, UNK; 1 TABLET
  4. TYLENOL [Concomitant]

REACTIONS (11)
  - Influenza [Unknown]
  - Eye pain [Unknown]
  - Pruritus [Unknown]
  - Insomnia [Unknown]
  - Dry skin [Unknown]
  - Fatigue [Unknown]
  - Limb discomfort [Unknown]
  - Headache [Unknown]
  - Myalgia [Unknown]
  - Muscle spasms [Unknown]
  - Neuropathy peripheral [Unknown]
